FAERS Safety Report 7359235-0 (Version None)
Quarter: 2011Q1

REPORT INFORMATION
  Report Type: 
  Country: None (occurrence: None)
  Receive Date: 20110317
  Receipt Date: 20090814
  Transmission Date: 20110831
  Serious: No
  Sender: FDA-Public Use
  Company Number: US-PFIZER INC-2009255892

PATIENT
  Sex: Male

DRUGS (1)
  1. NORVASC [Suspect]
     Indication: MUSCLE SPASMS

REACTIONS (2)
  - HYPOAESTHESIA [None]
  - PARAESTHESIA [None]
